FAERS Safety Report 7355969-2 (Version None)
Quarter: 2011Q1

REPORT INFORMATION
  Report Type: 
  Country: None (occurrence: None)
  Receive Date: 20110316
  Receipt Date: 20110214
  Transmission Date: 20110831
  Serious: No
  Sender: FDA-Public Use
  Company Number: US-ABBOTT-11P-163-0705765-00

PATIENT
  Sex: Male
  Weight: 83.536 kg

DRUGS (3)
  1. TRILIPIX [Suspect]
     Indication: LOW DENSITY LIPOPROTEIN INCREASED
     Dates: start: 20101201
  2. TRILIPIX [Suspect]
     Indication: HIGH DENSITY LIPOPROTEIN DECREASED
  3. ZEBETA [Concomitant]
     Indication: HYPERTENSION

REACTIONS (2)
  - ALOPECIA [None]
  - URINE ODOUR ABNORMAL [None]
